FAERS Safety Report 6528724-0 (Version None)
Quarter: 2009Q4

REPORT INFORMATION
  Report Type: 
  Country: None (occurrence: None)
  Receive Date: 20091229
  Receipt Date: 20091222
  Transmission Date: 20100525
  Serious: Yes (Death)
  Sender: FDA-Public Use
  Company Number: 2009SP042942

PATIENT
  Age: 26 Year
  Sex: Female

DRUGS (1)
  1. TEMODAR [Suspect]
     Indication: MALIGNANT NERVOUS SYSTEM NEOPLASM

REACTIONS (1)
  - DEATH [None]
